FAERS Safety Report 5060768-0 (Version None)
Quarter: 2006Q3

REPORT INFORMATION
  Report Type: 
  Country: None (occurrence: None)
  Receive Date: 20060719
  Receipt Date: 20060719
  Transmission Date: 20061208
  Serious: Yes (Other)
  Sender: FDA-Public Use
  Company Number: None

PATIENT
  Sex: Male

DRUGS (2)
  1. EZETIMIBE    10 MG [Suspect]
     Indication: HYPERLIPIDAEMIA
     Dosage: 10 MG  DAILY  PO
     Route: 048
     Dates: start: 20050718, end: 20060208
  2. TERAZOSIN HCL [Concomitant]

REACTIONS (1)
  - BLOOD CREATINE PHOSPHOKINASE INCREASED [None]
